FAERS Safety Report 5854004-2 (Version None)
Quarter: 2008Q3

REPORT INFORMATION
  Report Type: 
  Country: None (occurrence: None)
  Receive Date: 20080822
  Receipt Date: 20080811
  Transmission Date: 20090109
  Serious: Yes (Death)
  Sender: FDA-Public Use
  Company Number: FR-ROCHE-580602

PATIENT
  Sex: Male

DRUGS (9)
  1. ROCEPHIN [Suspect]
     Indication: INFECTION
     Dosage: FORM: INJECTABLE SOLUTION
     Route: 042
     Dates: start: 20080502, end: 20080504
  2. ALLOPURINOL [Suspect]
     Indication: GOUT
     Route: 048
     Dates: start: 20080407, end: 20080502
  3. MOPRAL [Concomitant]
     Dosage: INTRODUCED BEFORE JANUARY 2008
  4. EPREX [Concomitant]
     Dosage: INTRODUCED BEFORE JANUARY 2008
     Dates: end: 20080201
  5. LOXEN [Concomitant]
     Dosage: INTRODUCED BEFORE JANUARY 2008
     Dates: end: 20080201
  6. HYPERIUM [Concomitant]
     Dosage: INTRODUCED BEFORE JANUARY 2008
     Dates: end: 20080201
  7. LASIX [Concomitant]
     Dosage: INTRODUCED BEFORE JANUARY 2008
     Dates: end: 20080201
  8. PLAVIX [Concomitant]
     Dosage: INTRODUCED BEFORE JANUARY 2008
  9. COLCHIMAX [Concomitant]
     Dates: start: 20080124, end: 20080205

REACTIONS (1)
  - STEVENS-JOHNSON SYNDROME [None]
